FAERS Safety Report 9308214 (Version 5)
Quarter: 2015Q1

REPORT INFORMATION
  Report Type: Report from Study
  Country: JP (occurrence: JP)
  Receive Date: 20130524
  Receipt Date: 20150203
  Transmission Date: 20150721
  Serious: Yes (Hospitalization)
  Sender: FDA-Public Use
  Company Number: JP-PFIZER INC-2013149854

PATIENT
  Age: 47 Year
  Sex: Female
  Weight: 55 kg

DRUGS (12)
  1. PRIMPERAN [Concomitant]
     Active Substance: METOCLOPRAMIDE HYDROCHLORIDE
     Indication: PROPHYLAXIS
     Dosage: 5 MG, 3X/DAY
     Route: 048
     Dates: start: 20121003
  2. RHEUMATREX [Concomitant]
     Active Substance: METHOTREXATE SODIUM
     Indication: RHEUMATOID ARTHRITIS
     Dosage: 6 MG (2 CAPSULES OF 2 MG IN THE MORNING AND 1 CAPSULE OF 2 MG IN THE EVENING ON EVERY THURSDAY) WEEK
     Route: 048
     Dates: start: 20090626
  3. RIZE [Concomitant]
     Active Substance: CLOTIAZEPAM
     Indication: INSOMNIA
     Dosage: 5 MG, 3X/DAY
     Route: 048
     Dates: start: 20121003
  4. PARIET [Concomitant]
     Active Substance: RABEPRAZOLE SODIUM
     Indication: PROPHYLAXIS
     Dosage: 1 TABLET OF 10 MG ONCE DAILY
     Route: 048
     Dates: start: 20090203
  5. CINAL [Concomitant]
     Active Substance: ASCORBIC ACID\CALCIUM PANTOTHENATE
     Indication: VITAMIN SUPPLEMENTATION
     Dosage: 1 G, 3X/DAY
     Route: 048
     Dates: start: 20100817
  6. TOLEDOMIN [Concomitant]
     Active Substance: MILNACIPRAN HYDROCHLORIDE
     Indication: BIPOLAR DISORDER
     Dosage: 12.5 MG, 3X/DAY
     Route: 048
     Dates: start: 20121003
  7. LENDORMIN [Concomitant]
     Active Substance: BROTIZOLAM
     Indication: INSOMNIA
     Dosage: 0.25 MG, 1X/DAY
     Route: 048
     Dates: start: 20121010
  8. FOLIAMIN [Concomitant]
     Active Substance: FOLIC ACID
     Indication: PROPHYLAXIS
     Dosage: 5 MG (1 TABLET OF 5 MG ONCE DAILY ON EVERY SATURDAY) WEEKLY
     Route: 048
     Dates: start: 20090604
  9. PYDOXAL [Concomitant]
     Active Substance: PYRIDOXAL
     Indication: PROPHYLAXIS
     Dosage: 10 MG, 2X/DAY
     Route: 048
     Dates: start: 20090604
  10. TRANSAMIN [Concomitant]
     Active Substance: TRANEXAMIC ACID
     Indication: VITAMIN SUPPLEMENTATION
     Dosage: 250 MG, 3X/DAY
     Route: 048
     Dates: start: 20100817
  11. TOFACITINIB CITRATE [Suspect]
     Active Substance: TOFACITINIB CITRATE
     Indication: RHEUMATOID ARTHRITIS
     Dosage: 5 MG, 2X/DAY
     Route: 048
     Dates: start: 20111122
  12. PROMAC [Concomitant]
     Active Substance: NITROFURANTOIN
     Indication: PROPHYLAXIS
     Dosage: 0.5 G, 2X/DAY
     Route: 048
     Dates: start: 20090217

REACTIONS (1)
  - Uterine leiomyoma [Recovered/Resolved]

NARRATIVE: CASE EVENT DATE: 20130510
